FAERS Safety Report 26200423 (Version 1)
Quarter: 2025Q4

REPORT INFORMATION
  Report Type: Spontaneous
  Country: CN (occurrence: CN)
  Receive Date: 20251225
  Receipt Date: 20251225
  Transmission Date: 20260118
  Serious: Yes (Hospitalization)
  Sender: BEIGENE
  Company Number: CN-BEONEMEDICINES-BGN-2025-022918

PATIENT
  Age: 55 Year
  Sex: Male
  Weight: 67 kg

DRUGS (6)
  1. TISLELIZUMAB [Suspect]
     Active Substance: TISLELIZUMAB
     Indication: Hepatocellular carcinoma
     Dosage: 200 MILLIGRAM, Q3WK
     Dates: start: 20240920, end: 20250731
  2. TISLELIZUMAB [Suspect]
     Active Substance: TISLELIZUMAB
     Dosage: 200 MILLIGRAM, Q3WK
     Route: 041
     Dates: start: 20240920, end: 20250731
  3. TISLELIZUMAB [Suspect]
     Active Substance: TISLELIZUMAB
     Dosage: 200 MILLIGRAM, Q3WK
     Route: 041
     Dates: start: 20240920, end: 20250731
  4. TISLELIZUMAB [Suspect]
     Active Substance: TISLELIZUMAB
     Dosage: 200 MILLIGRAM, Q3WK
     Dates: start: 20240920, end: 20250731
  5. LENVIMA [Concomitant]
     Active Substance: LENVATINIB
     Indication: Hepatic cancer
     Dosage: 12 MILLIGRAM, QD
     Route: 048
     Dates: start: 20240920, end: 20250731
  6. LENVIMA [Concomitant]
     Active Substance: LENVATINIB
     Dosage: 12 MILLIGRAM, QD
     Route: 061
     Dates: start: 20240920, end: 20250731

REACTIONS (2)
  - Liver injury [Recovering/Resolving]
  - Blood pressure increased [Unknown]

NARRATIVE: CASE EVENT DATE: 20250731
